FAERS Safety Report 4648611-2 (Version None)
Quarter: 2005Q2

REPORT INFORMATION
  Report Type: 
  Country: None (occurrence: None)
  Receive Date: 20050427
  Receipt Date: 20050413
  Transmission Date: 20051028
  Serious: Yes (Hospitalization)
  Sender: FDA-Public Use
  Company Number: 213387

PATIENT
  Age: 51 Year
  Sex: Male

DRUGS (3)
  1. RAPTIVA [Suspect]
     Indication: PSORIASIS
     Dosage: 70 MG, 1/WEEK, SUBCUTANEOUS; 90 MG, 1 /WEEK
     Route: 058
     Dates: end: 20050316
  2. RAPTIVA [Suspect]
     Indication: PSORIASIS
     Dosage: 70 MG, 1/WEEK, SUBCUTANEOUS; 90 MG, 1 /WEEK
     Route: 058
     Dates: start: 20050126
  3. NIFEDIPINE [Concomitant]

REACTIONS (2)
  - HYPOAESTHESIA [None]
  - PNEUMONIA [None]
